FAERS Safety Report 19009795 (Version 21)
Quarter: 2025Q4

REPORT INFORMATION
  Report Type: Spontaneous
  Country: EU (occurrence: EU)
  Receive Date: 20210316
  Receipt Date: 20251229
  Transmission Date: 20260118
  Serious: Yes (Hospitalization, Other)
  Sender: AMGEN
  Company Number: EU-PFIZER INC-2021233655

PATIENT
  Age: 48 Year
  Sex: Female

DRUGS (8)
  1. ENBREL [Suspect]
     Active Substance: ETANERCEPT
     Indication: Polyarthritis
     Dosage: UNK UNK, WEEKLY
     Route: 065
     Dates: start: 20051217, end: 201310
  2. ENBREL [Suspect]
     Active Substance: ETANERCEPT
     Dosage: UNK UNK, WEEKLY
     Route: 065
     Dates: start: 201404, end: 201701
  3. ENBREL [Suspect]
     Active Substance: ETANERCEPT
     Dosage: 50 MILLIGRAM, QWK
     Route: 065
     Dates: start: 201703, end: 201711
  4. ENBREL [Suspect]
     Active Substance: ETANERCEPT
     Dosage: 50 MG EVERY 15 DAYS
     Route: 065
     Dates: start: 201803
  5. ENBREL [Suspect]
     Active Substance: ETANERCEPT
     Dosage: 50 MG EVERY 10 DAYS
     Route: 065
  6. ENBREL [Suspect]
     Active Substance: ETANERCEPT
     Dosage: 50 MG, WEEKLY
     Route: 065
     Dates: end: 20210226
  7. ARAVA [Suspect]
     Active Substance: LEFLUNOMIDE
     Indication: Product used for unknown indication
     Dosage: 20 MG, 1X/DAY
     Route: 065
     Dates: start: 20051020, end: 20130910
  8. TOCILIZUMAB [Suspect]
     Active Substance: TOCILIZUMAB
     Indication: Product used for unknown indication
     Dosage: UNK
     Route: 065
     Dates: start: 20210415, end: 20210513

REACTIONS (33)
  - Injury associated with device [Not Recovered/Not Resolved]
  - Abdominal pain [Not Recovered/Not Resolved]
  - Injection site erythema [Not Recovered/Not Resolved]
  - Incorrect dose administered by device [Not Recovered/Not Resolved]
  - Dermatitis acneiform [Unknown]
  - Rash maculo-papular [Recovered/Resolved]
  - Bone abscess [Unknown]
  - Pyrexia [Unknown]
  - Device defective [Not Recovered/Not Resolved]
  - Vomiting [Unknown]
  - Pain [Unknown]
  - Acne [Unknown]
  - Blister [Unknown]
  - Anaemia [Unknown]
  - Subileus [Unknown]
  - Large intestine infection [Unknown]
  - Faecaloma [Unknown]
  - Heavy menstrual bleeding [Unknown]
  - Fear of injection [Unknown]
  - Pruritus [Recovered/Resolved]
  - Folliculitis [Unknown]
  - Prurigo [Recovered/Resolved]
  - Musculoskeletal stiffness [Unknown]
  - Eczema [Unknown]
  - General physical health deterioration [Unknown]
  - Asthenia [Unknown]
  - Off label use [Unknown]
  - Drug ineffective for unapproved indication [Unknown]
  - Rash vesicular [Unknown]
  - Skin lesion [Unknown]
  - Gastroenteritis [Unknown]
  - COVID-19 [Unknown]
  - Adrenal insufficiency [Unknown]

NARRATIVE: CASE EVENT DATE: 20110901
